FAERS Safety Report 25464261 (Version 1)
Quarter: 2025Q2

REPORT INFORMATION
  Report Type: Spontaneous
  Country: US (occurrence: US)
  Receive Date: 20250621
  Receipt Date: 20250621
  Transmission Date: 20250717
  Serious: Yes (Life-Threatening, Hospitalization)
  Sender: MACLEODS
  Company Number: US-MACLEODS PHARMA-MAC2025053589

PATIENT

DRUGS (6)
  1. ARIPIPRAZOLE [Suspect]
     Active Substance: ARIPIPRAZOLE
     Indication: Major depression
     Route: 065
  2. ARIPIPRAZOLE [Suspect]
     Active Substance: ARIPIPRAZOLE
     Indication: Generalised anxiety disorder
  3. BUPROPION [Concomitant]
     Active Substance: BUPROPION
     Indication: Major depression
     Route: 065
  4. BUPROPION [Concomitant]
     Active Substance: BUPROPION
     Indication: Generalised anxiety disorder
  5. DULOXETINE [Concomitant]
     Active Substance: DULOXETINE
     Indication: Major depression
     Dosage: DECREASED FROM 30 MG ON DAY 1 OF ARIPIPRAZOLE
     Route: 065
  6. DULOXETINE [Concomitant]
     Active Substance: DULOXETINE
     Indication: Generalised anxiety disorder
     Dosage: BEFORE STARTING ARIPIPRAZOLE
     Route: 065

REACTIONS (2)
  - Respiratory failure [Unknown]
  - Neuroleptic malignant syndrome [Recovered/Resolved]
